FAERS Safety Report 8364171-7 (Version None)
Quarter: 2012Q1

REPORT INFORMATION
  Report Type: 
  Country: None (occurrence: None)
  Receive Date: 20120323
  Receipt Date: 20111108
  Transmission Date: 20120608
  Serious: Yes (Other)
  Sender: FDA-Public Use
  Company Number: 163-21880-11111445

PATIENT
  Age: 71 Year
  Sex: Female

DRUGS (13)
  1. LETROZOLE [Concomitant]
  2. ASCORBIC ACID [Concomitant]
  3. PHYTONADIONE [Concomitant]
  4. REVLIMID [Suspect]
     Indication: MULTIPLE MYELOMA
     Dosage: 25 MG, DAILY X 21 DAYS, PO
     Route: 048
     Dates: start: 20110716
  5. VITAMIN B12 [Concomitant]
  6. LOVAZA [Concomitant]
  7. MULTIVITAMIN [Concomitant]
  8. VITAMIN D [Concomitant]
  9. LORTAB [Concomitant]
  10. CALCIUM CARBONATE [Concomitant]
  11. FEMARA [Concomitant]
  12. DEXAMETHASONE [Concomitant]
  13. STOOL SOFTENER (DOCUSATE SODIUM) [Concomitant]

REACTIONS (1)
  - MELAENA [None]
